FAERS Safety Report 14860873 (Version 3)
Quarter: 2018Q3

REPORT INFORMATION
  Report Type: Other
  Country: DE (occurrence: GB)
  Receive Date: 20180508
  Receipt Date: 20180824
  Transmission Date: 20181010
  Serious: Yes (Death, Hospitalization, Other)
  Sender: FDA-Public Use
  Company Number: GB-MACLEODS PHARMACEUTICALS US LTD-MAC2018012985

PATIENT

DRUGS (28)
  1. MEROPENEM. [Suspect]
     Active Substance: MEROPENEM
     Indication: INFECTION
     Dosage: UNK
     Route: 065
  2. ANTITHYMOCYTE IMMUNOGLOBULIN [Suspect]
     Active Substance: THYMOCYTE IMMUNE GLOBULIN NOS
     Indication: GRAFT VERSUS HOST DISEASE
     Dosage: UNK, (5 MG/ KG) WAS ADMINISTERED FOR 4 DAYS )
     Route: 065
  3. LEVOFLOXACIN. [Suspect]
     Active Substance: LEVOFLOXACIN
     Indication: ANTIBIOTIC PROPHYLAXIS
  4. PIPERACILLIN/TAZOBACTAM [Suspect]
     Active Substance: PIPERACILLIN SODIUM\TAZOBACTAM SODIUM
     Indication: INFECTION
     Dosage: UNK
     Route: 065
  5. AMPHOTERICIN B. [Suspect]
     Active Substance: AMPHOTERICIN B
     Indication: ANTIBIOTIC PROPHYLAXIS
  6. AMSACRINE [Suspect]
     Active Substance: AMSACRINE
     Indication: ACUTE MYELOID LEUKAEMIA
     Dosage: 100 MG/M2 UNK
     Route: 065
  7. PREDNISOLONE. [Concomitant]
     Active Substance: PREDNISOLONE
     Indication: GRAFT VERSUS HOST DISEASE
     Dosage: UNK, (2 MG/KG)
     Route: 065
  8. MEROPENEM. [Suspect]
     Active Substance: MEROPENEM
     Indication: ANTIBIOTIC PROPHYLAXIS
  9. AMPHOTERICIN B. [Suspect]
     Active Substance: AMPHOTERICIN B
     Indication: INFECTION
     Dosage: UNK
     Route: 065
  10. TIGECYCLINE. [Suspect]
     Active Substance: TIGECYCLINE
     Indication: INFECTION
     Dosage: UNK
     Route: 065
  11. ANTITHYMOCYTE IMMUNOGLOBULIN [Suspect]
     Active Substance: THYMOCYTE IMMUNE GLOBULIN NOS
     Indication: IMMUNOSUPPRESSION
     Dosage: UNK, POWDER FOR SOLUTION FOR INFUSION
     Route: 065
  12. CEFTAZIDIME. [Suspect]
     Active Substance: CEFTAZIDIME
     Indication: INFECTION
     Dosage: UNK
     Route: 065
  13. CYTARABINE. [Suspect]
     Active Substance: CYTARABINE
     Indication: ACUTE MYELOID LEUKAEMIA
     Dosage: 2000 MG/M2UNK
     Route: 065
  14. FLUDARABINE PHOSPHATE. [Suspect]
     Active Substance: FLUDARABINE PHOSPHATE
     Indication: ACUTE MYELOID LEUKAEMIA
     Dosage: 30 MG/M2 UNK
     Route: 065
  15. CYCLOSPORINE. [Concomitant]
     Active Substance: CYCLOSPORINE
     Indication: IMMUNOSUPPRESSION
     Dosage: UNK
     Route: 065
  16. LEVOFLOXACIN. [Suspect]
     Active Substance: LEVOFLOXACIN
     Indication: INFECTION
     Dosage: UNK
     Route: 065
  17. BUSULFAN. [Suspect]
     Active Substance: BUSULFAN
     Indication: ACUTE MYELOID LEUKAEMIA
     Dosage: 3.2 MILLIGRAM/KILOGRAM
     Route: 065
  18. VANCOMYCIN [Suspect]
     Active Substance: VANCOMYCIN
     Indication: ANTIBIOTIC PROPHYLAXIS
  19. FLUCONAZOLE. [Suspect]
     Active Substance: FLUCONAZOLE
     Indication: ANTIFUNGAL PROPHYLAXIS
     Dosage: 200 MILLIGRAM
     Route: 065
  20. PIPERACILLIN/TAZOBACTAM [Suspect]
     Active Substance: PIPERACILLIN SODIUM\TAZOBACTAM SODIUM
     Indication: ANTIBIOTIC PROPHYLAXIS
  21. CEFTAZIDIME. [Suspect]
     Active Substance: CEFTAZIDIME
     Indication: ANTIBIOTIC PROPHYLAXIS
  22. MITOXANTRONE [Suspect]
     Active Substance: MITOXANTRONE HYDROCHLORIDE
     Indication: ACUTE MYELOID LEUKAEMIA
     Dosage: UNK
     Route: 065
  23. TIGECYCLINE. [Suspect]
     Active Substance: TIGECYCLINE
     Indication: ANTIBIOTIC PROPHYLAXIS
  24. THYMOGLOBULINE [Suspect]
     Active Substance: LAPINE T-LYMPHOCYTE IMMUNE GLOBULIN
     Indication: ACUTE MYELOID LEUKAEMIA
     Dosage: UNK
     Route: 065
  25. CYCLOSPORINE. [Concomitant]
     Active Substance: CYCLOSPORINE
     Indication: ACUTE MYELOID LEUKAEMIA
  26. VANCOMYCIN [Suspect]
     Active Substance: VANCOMYCIN
     Indication: INFECTION
     Dosage: UNK
     Route: 065
  27. CASPOFUNGIN [Suspect]
     Active Substance: CASPOFUNGIN
     Indication: ANTIBIOTIC PROPHYLAXIS
     Dosage: UNK
     Route: 065
  28. MYCOPHENOLATE MOFETIL. [Suspect]
     Active Substance: MYCOPHENOLATE MOFETIL
     Indication: ACUTE MYELOID LEUKAEMIA
     Dosage: UNK
     Route: 065

REACTIONS (7)
  - Gastrointestinal disorder [Fatal]
  - Malaise [Fatal]
  - Fatigue [Fatal]
  - Graft versus host disease [Fatal]
  - C-reactive protein increased [Fatal]
  - Systemic inflammatory response syndrome [Fatal]
  - Abscess [Fatal]
